FAERS Safety Report 14999041 (Version 1)
Quarter: 2018Q2

REPORT INFORMATION
  Report Type: Report from Study
  Country: IT (occurrence: IT)
  Receive Date: 20180612
  Receipt Date: 20180612
  Transmission Date: 20180711
  Serious: Yes (Death)
  Sender: FDA-Public Use
  Company Number: IT-TEVA-2018-IT-904253

PATIENT
  Age: 67 Year
  Sex: Female

DRUGS (8)
  1. HYDROXYCHLOROQUINE [Concomitant]
     Active Substance: HYDROXYCHLOROQUINE
     Route: 065
  2. INACTIVATED SPLIT-VIRUS INFLUENZA VACCINE [Interacting]
     Active Substance: INFLUENZA VIRUS VACCINE
     Indication: IMMUNISATION
     Route: 065
  3. HYDROCHLOROTHIAZIDE. [Concomitant]
     Active Substance: HYDROCHLOROTHIAZIDE
     Route: 065
  4. CELECOXIB. [Suspect]
     Active Substance: CELECOXIB
     Route: 065
  5. LORAZEPAM. [Concomitant]
     Active Substance: LORAZEPAM
     Route: 065
  6. WARFARIN [Interacting]
     Active Substance: WARFARIN
     Indication: ANTICOAGULANT THERAPY
     Route: 065
  7. MONTELUKAST [Concomitant]
     Active Substance: MONTELUKAST SODIUM
     Route: 065
  8. ASA [Interacting]
     Active Substance: ASPIRIN
     Route: 065

REACTIONS (6)
  - Drug interaction [Fatal]
  - Platelet count decreased [Fatal]
  - Haemoptysis [Fatal]
  - Contusion [Fatal]
  - International normalised ratio decreased [Fatal]
  - Pyrexia [Fatal]
